FAERS Safety Report 10213523 (Version 1)
Quarter: 2014Q2

REPORT INFORMATION
  Report Type: Spontaneous
  Country: ES (occurrence: ES)
  Receive Date: 20140603
  Receipt Date: 20140603
  Transmission Date: 20141212
  Serious: Yes (Death, Other)
  Sender: FDA-Public Use
  Company Number: ES-CELGENEUS-144-21660-14053879

PATIENT
  Age: 30 Year
  Sex: Female

DRUGS (11)
  1. ABRAXANE [Suspect]
     Indication: BREAST CANCER METASTATIC
     Route: 041
     Dates: start: 201105
  2. CARBOPLATIN [Concomitant]
     Indication: BREAST CANCER
     Route: 065
     Dates: start: 200810, end: 200905
  3. CARBOPLATIN [Concomitant]
     Route: 065
     Dates: start: 201105
  4. TRASTUZUMAB [Concomitant]
     Indication: BREAST CANCER
     Route: 065
     Dates: start: 200810, end: 200905
  5. TRASTUZUMAB [Concomitant]
     Route: 065
  6. TRASTUZUMAB [Concomitant]
     Route: 065
     Dates: start: 201104
  7. TRASTUZUMAB [Concomitant]
     Route: 065
     Dates: start: 201105
  8. TRASTUZUMAB [Concomitant]
     Route: 065
     Dates: start: 201208
  9. DOCETAXEL [Concomitant]
     Indication: BREAST CANCER
     Route: 065
     Dates: start: 201208
  10. PERTUZUMAB [Concomitant]
     Indication: BREAST CANCER
     Route: 065
     Dates: start: 201311
  11. T-DM1 [Concomitant]
     Indication: BREAST CANCER
     Route: 065
     Dates: start: 201301, end: 201306

REACTIONS (2)
  - Death [Fatal]
  - Breast cancer metastatic [Unknown]
